FAERS Safety Report 9040179 (Version 1)
Quarter: 2013Q1

REPORT INFORMATION
  Report Type: Report from Study
  Country: US (occurrence: US)
  Receive Date: 20130129
  Receipt Date: 20130129
  Transmission Date: 20140127
  Serious: No
  Sender: FDA-Public Use
  Company Number: US-ABBOTT-12P-163-0895782-00

PATIENT
  Age: 47 Year
  Sex: Female

DRUGS (7)
  1. HUMIRA 40 MG/0.8 ML PEN [Suspect]
     Indication: CROHN^S DISEASE
     Dates: start: 20111011
  2. COREG [Concomitant]
     Indication: BUNDLE BRANCH BLOCK
  3. LISINOPRIL [Concomitant]
     Indication: BUNDLE BRANCH BLOCK
  4. DIGOXIN [Concomitant]
     Indication: BUNDLE BRANCH BLOCK
  5. IMURAN [Concomitant]
     Indication: PRODUCT USED FOR UNKNOWN INDICATION
  6. IRON [Concomitant]
     Indication: MINERAL SUPPLEMENTATION
     Dosage: DAILY
  7. VIT C [Concomitant]
     Indication: VITAMIN SUPPLEMENTATION
     Dosage: DAILY

REACTIONS (2)
  - Injection site erythema [Recovering/Resolving]
  - Injection site erythema [Recovering/Resolving]
